FAERS Safety Report 8699961 (Version 2)
Quarter: 2012Q4

REPORT INFORMATION
  Report Type: 
  Country: US (occurrence: US)
  Receive Date: 20120802
  Receipt Date: 20120907
  Transmission Date: 20130627
  Serious: No
  Sender: FDA-Public Use
  Company Number: US-ASTRAZENECA-2012SE52207

PATIENT
  Age: 75 Year
  Sex: Male
  Weight: 63.5 kg

DRUGS (7)
  1. PULMICORT FLEXHALER [Suspect]
     Indication: CHRONIC OBSTRUCTIVE PULMONARY DISEASE
     Route: 055
  2. PULMICORT FLEXHALER [Suspect]
     Indication: CHRONIC OBSTRUCTIVE PULMONARY DISEASE
     Route: 055
  3. TOPROL XL [Concomitant]
  4. CHOLESTEROL MEDICATION [Concomitant]
  5. LISINOPRIL [Concomitant]
  6. ALBUTEROL [Concomitant]
  7. NEBULIZER MEDICINE [Concomitant]

REACTIONS (3)
  - Respiratory distress [Unknown]
  - Off label use [Recovered/Resolved]
  - Drug ineffective [Unknown]
